FAERS Safety Report 7666274-9 (Version None)
Quarter: 2011Q3

REPORT INFORMATION
  Report Type: 
  Country: None (occurrence: None)
  Receive Date: 20110806
  Receipt Date: 20110506
  Transmission Date: 20111222
  Serious: No
  Sender: FDA-Public Use
  Company Number: US-ABBOTT-11P-163-0723882-00

PATIENT
  Sex: Male
  Weight: 90.8 kg

DRUGS (4)
  1. ASPIRIN [Concomitant]
     Indication: PRODUCT USED FOR UNKNOWN INDICATION
  2. NIASPAN [Suspect]
     Indication: PRODUCT USED FOR UNKNOWN INDICATION
     Dates: start: 20110429
  3. UNKNOWN MEDICATION [Concomitant]
     Indication: ARTHRITIS
  4. UNKNOWN MEDICATION [Concomitant]
     Indication: BLOOD PRESSURE

REACTIONS (1)
  - FLUSHING [None]
